FAERS Safety Report 23273148 (Version 1)
Quarter: 2023Q4

REPORT INFORMATION
  Report Type: Spontaneous
  Country: US (occurrence: None)
  Receive Date: 20231206
  Receipt Date: 20231206
  Transmission Date: 20240110
  Serious: Yes (Life-Threatening)
  Sender: FDA-Public Use
  Company Number: None

PATIENT
  Age: 5 Year
  Sex: Male
  Weight: 15.2 kg

DRUGS (1)
  1. SKYTROFA [Suspect]
     Active Substance: LONAPEGSOMATROPIN-TCGD
     Dosage: 3.6 MG ONCE WEEKLY
     Route: 058
     Dates: start: 20231130, end: 20231130

REACTIONS (8)
  - Drug hypersensitivity [None]
  - Anaphylactic reaction [None]
  - Crying [None]
  - Nasal congestion [None]
  - Nasal obstruction [None]
  - Pruritus [None]
  - Periorbital oedema [None]
  - Swelling face [None]

NARRATIVE: CASE EVENT DATE: 20231130
